FAERS Safety Report 8516626-X (Version None)
Quarter: 2012Q3

REPORT INFORMATION
  Report Type: 
  Country: None (occurrence: None)
  Receive Date: 20120718
  Receipt Date: 20120713
  Transmission Date: 20120928
  Serious: Yes (Death)
  Sender: FDA-Public Use
  Company Number: FR-JNJFOC-20120707325

PATIENT

DRUGS (5)
  1. CHLORAMBUCIL [Suspect]
     Indication: MANTLE CELL LYMPHOMA
     Dosage: ADMINISTERED FROM DAY 20 TO 29
     Route: 065
  2. VELCADE [Suspect]
     Indication: MANTLE CELL LYMPHOMA
     Dosage: ON DAYS 1, 4, 8 AND 11
     Route: 065
  3. DOXORUBICIN HCL [Suspect]
     Indication: MANTLE CELL LYMPHOMA
     Dosage: ADMINISTERED 3 CYCLES OF THERAPY, CONTINUOUS INFUSION FROM DAY 1 TO 4
     Route: 042
  4. RITUXIMAB [Suspect]
     Indication: MANTLE CELL LYMPHOMA
     Dosage: ON DAY 1 (AND DAY 8 OF CYCLE 1)
     Route: 065
  5. DEXAMETHASONE [Suspect]
     Indication: MANTLE CELL LYMPHOMA
     Dosage: ADMINISTERED FROM DAY 1 TO 4
     Route: 065

REACTIONS (1)
  - TOXICITY TO VARIOUS AGENTS [None]
